FAERS Safety Report 8328537-3 (Version None)
Quarter: 2012Q2

REPORT INFORMATION
  Report Type: 
  Country: None (occurrence: None)
  Receive Date: 20120502
  Receipt Date: 20101028
  Transmission Date: 20120825
  Serious: No
  Sender: FDA-Public Use
  Company Number: US-TEVA-2010003947

PATIENT
  Sex: Female

DRUGS (2)
  1. NUVIGIL [Suspect]
     Dosage: 125 MILLIGRAM;
     Route: 048
  2. NUVIGIL [Suspect]
     Dosage: 250 MILLIGRAM;
     Route: 048

REACTIONS (2)
  - NAUSEA [None]
  - HYPOAESTHESIA [None]
